FAERS Safety Report 12881972 (Version 4)
Quarter: 2016Q4

REPORT INFORMATION
  Report Type: Report from Study
  Country: US (occurrence: US)
  Receive Date: 20161025
  Receipt Date: 20161220
  Transmission Date: 20170207
  Serious: Yes (Hospitalization, Other)
  Sender: FDA-Public Use
  Company Number: US-GILEAD-2016-0239737

PATIENT
  Age: 52 Year
  Sex: Female

DRUGS (11)
  1. ADCIRCA [Suspect]
     Active Substance: TADALAFIL
     Indication: PRODUCT USED FOR UNKNOWN INDICATION
     Dosage: UNK
     Route: 065
  2. TORSEMIDE. [Concomitant]
     Active Substance: TORSEMIDE
  3. POTASSIUM [Concomitant]
     Active Substance: POTASSIUM
  4. ACETAMINOPHEN. [Concomitant]
     Active Substance: ACETAMINOPHEN
  5. WARFARIN [Concomitant]
     Active Substance: WARFARIN
  6. REMODULIN [Suspect]
     Active Substance: TREPROSTINIL
     Indication: PRODUCT USED FOR UNKNOWN INDICATION
     Dosage: UNK
     Route: 065
  7. GABAPENTIN. [Concomitant]
     Active Substance: GABAPENTIN
  8. LASIX [Concomitant]
     Active Substance: FUROSEMIDE
  9. AMBRISENTAN [Suspect]
     Active Substance: AMBRISENTAN
     Indication: PULMONARY ARTERIAL HYPERTENSION
     Dosage: 10 MG, QD
     Route: 065
     Dates: start: 20091005
  10. ASPIRIN                            /00002701/ [Concomitant]
     Active Substance: ASPIRIN
  11. NORETHINDRONE                      /00044901/ [Concomitant]
     Active Substance: NORETHINDRONE

REACTIONS (4)
  - Syncope [Not Recovered/Not Resolved]
  - Oedema [Unknown]
  - Lung disorder [Unknown]
  - Fluid retention [Unknown]
